FAERS Safety Report 18245153 (Version 2)
Quarter: 2020Q3

REPORT INFORMATION
  Report Type: Spontaneous
  Country: US (occurrence: US)
  Receive Date: 20200908
  Receipt Date: 20200911
  Transmission Date: 20201103
  Serious: Yes (Other)
  Sender: FDA-Public Use
  Company Number: US-ROCHE-2673281

PATIENT
  Age: 66 Year
  Sex: Female

DRUGS (4)
  1. CAPECITABINE. [Concomitant]
     Active Substance: CAPECITABINE
     Route: 048
     Dates: start: 20200622
  2. HERCEPTIN [Suspect]
     Active Substance: TRASTUZUMAB
     Indication: PRODUCT USED FOR UNKNOWN INDICATION
     Route: 065
     Dates: start: 20200622
  3. DEXAMETHASONE. [Concomitant]
     Active Substance: DEXAMETHASONE
  4. COMPAZINE [Concomitant]
     Active Substance: PROCHLORPERAZINE MALEATE

REACTIONS (14)
  - Weight decreased [Unknown]
  - Decreased appetite [Unknown]
  - Nausea [Unknown]
  - Memory impairment [Unknown]
  - Vomiting [Unknown]
  - Fatigue [Unknown]
  - Gastric disorder [Unknown]
  - Anoxia [Unknown]
  - Blindness [Unknown]
  - Dizziness [Unknown]
  - Diarrhoea [Unknown]
  - Brain neoplasm [Unknown]
  - Dyspepsia [Unknown]
  - Blood potassium decreased [Unknown]

NARRATIVE: CASE EVENT DATE: 20200624
